FAERS Safety Report 15678531 (Version 1)
Quarter: 2018Q4

REPORT INFORMATION
  Report Type: Spontaneous
  Country: GB (occurrence: GB)
  Receive Date: 20181201
  Receipt Date: 20181201
  Transmission Date: 20190205
  Serious: Yes (Other)
  Sender: FDA-Public Use
  Company Number: PHHY2018GB169508

PATIENT
  Age: 52 Year
  Sex: Female

DRUGS (2)
  1. OCTREOTIDE. [Suspect]
     Active Substance: OCTREOTIDE
     Indication: NEUROENDOCRINE TUMOUR
     Dosage: 30 MG, QMO (EVERY 4 WEEKS)
     Route: 065
     Dates: start: 201305
  2. EVEROLIMUS. [Suspect]
     Active Substance: EVEROLIMUS
     Indication: NEUROENDOCRINE TUMOUR
     Dosage: 10 MG, QD
     Route: 065
     Dates: start: 201604, end: 201701

REACTIONS (9)
  - Ascites [Unknown]
  - Lower respiratory tract infection [Unknown]
  - Pneumonitis [Unknown]
  - Pericardial effusion [Unknown]
  - Upper gastrointestinal haemorrhage [Unknown]
  - Metastases to liver [Unknown]
  - Bleeding varicose vein [Unknown]
  - Neuroendocrine tumour [Unknown]
  - Malignant neoplasm progression [Unknown]

NARRATIVE: CASE EVENT DATE: 201507
